FAERS Safety Report 14602993 (Version 1)
Quarter: 2018Q1

REPORT INFORMATION
  Report Type: Spontaneous
  Country: DK (occurrence: DK)
  Receive Date: 20180306
  Receipt Date: 20180306
  Transmission Date: 20180509
  Serious: Yes (Death, Life-Threatening, Hospitalization)
  Sender: FDA-Public Use
  Company Number: DK-009507513-1802DNK013636

PATIENT
  Age: 61 Year
  Sex: Female

DRUGS (6)
  1. KEYTRUDA [Suspect]
     Active Substance: PEMBROLIZUMAB
     Indication: LUNG CANCER METASTATIC
     Dosage: STRENGTH: 50 MG
     Route: 042
     Dates: start: 20170929
  2. FOLSYRE [Concomitant]
     Indication: ADVERSE DRUG REACTION
     Dosage: STRENGTH: 400 MICROGRAM
     Route: 048
     Dates: start: 20171128
  3. PREDNISOLONE. [Concomitant]
     Active Substance: PREDNISOLONE
     Indication: ADRENOCORTICAL STEROID THERAPY
     Dosage: STRENGTH: 25 MG
     Route: 048
     Dates: start: 20170904
  4. VIBEDEN [Concomitant]
     Indication: PRODUCT USED FOR UNKNOWN INDICATION
     Dosage: STRENGTH: 1 MG/ML
     Route: 030
  5. PEMETREXED DISODIUM [Concomitant]
     Active Substance: PEMETREXED DISODIUM
     Indication: LUNG NEOPLASM MALIGNANT
     Dosage: STRENGTH: 100 MG; IN TOTAL
     Route: 042
     Dates: start: 20171129, end: 20171129
  6. INNOHEP [Concomitant]
     Active Substance: TINZAPARIN SODIUM
     Indication: THROMBOSIS
     Dosage: STRENGTH: 14000 ANTI-XA IE
     Route: 058
     Dates: start: 20171123

REACTIONS (3)
  - Cerebrovascular accident [Fatal]
  - Visual impairment [Unknown]
  - Basilar artery thrombosis [Fatal]

NARRATIVE: CASE EVENT DATE: 20171202
